FAERS Safety Report 23600427 (Version 1)
Quarter: 2024Q1

REPORT INFORMATION
  Report Type: Report from Study
  Country: RO (occurrence: RO)
  Receive Date: 20240306
  Receipt Date: 20240306
  Transmission Date: 20240410
  Serious: Yes (Hospitalization)
  Sender: FDA-Public Use
  Company Number: RO-ABBVIE-5662789

PATIENT
  Age: 68 Year
  Sex: Male

DRUGS (2)
  1. CARBIDOPA\LEVODOPA [Suspect]
     Active Substance: CARBIDOPA\LEVODOPA
     Indication: Parkinson^s disease
     Dosage: DM=3.00 DC=1.80 ED=1.00 NRED=1; DMN=0.00 DCN=0.00 EDN=0.00 NREDN=0
     Route: 050
     Dates: start: 20230407, end: 20240229
  2. CARBIDOPA\LEVODOPA [Suspect]
     Active Substance: CARBIDOPA\LEVODOPA

REACTIONS (4)
  - Drug ineffective [Not Recovered/Not Resolved]
  - On and off phenomenon [Unknown]
  - Salivary hypersecretion [Unknown]
  - Weight decreased [Unknown]

NARRATIVE: CASE EVENT DATE: 20230101
